FAERS Safety Report 5691443-7 (Version None)
Quarter: 2008Q2

REPORT INFORMATION
  Report Type: 
  Country: None (occurrence: None)
  Receive Date: 20080401
  Receipt Date: 20080401
  Transmission Date: 20081010
  Serious: Yes (Other)
  Sender: FDA-Public Use
  Company Number: None

PATIENT
  Sex: Female
  Weight: 20.7 kg

DRUGS (2)
  1. SINGULAIR [Suspect]
     Indication: COUGH
     Dates: start: 20080129, end: 20080321
  2. SINGULAIR [Suspect]
     Indication: RHINITIS ALLERGIC
     Dates: start: 20080129, end: 20080321

REACTIONS (3)
  - ABNORMAL BEHAVIOUR [None]
  - CRYING [None]
  - DEPRESSION [None]
